FAERS Safety Report 7409552-0 (Version None)
Quarter: 2011Q2

REPORT INFORMATION
  Report Type: 
  Country: None (occurrence: None)
  Receive Date: 20110412
  Receipt Date: 20110406
  Transmission Date: 20111010
  Serious: Yes (Other)
  Sender: FDA-Public Use
  Company Number: FR-MERCK-1104FRA00011

PATIENT
  Age: 51 Year
  Sex: Female

DRUGS (23)
  1. EMEND [Suspect]
     Route: 048
     Dates: start: 20110223, end: 20110223
  2. TINZAPARIN SODIUM [Concomitant]
     Indication: THROMBOSIS
     Route: 065
  3. CYCLOPHOSPHAMIDE [Concomitant]
     Route: 065
     Dates: start: 20110105, end: 20110105
  4. CYCLOPHOSPHAMIDE [Concomitant]
     Route: 065
     Dates: start: 20110126, end: 20110126
  5. EPIRUBICIN HYDROCHLORIDE [Concomitant]
     Route: 065
     Dates: start: 20110223, end: 20110223
  6. EMEND [Suspect]
     Route: 048
     Dates: start: 20110127, end: 20110128
  7. EMEND [Suspect]
     Route: 048
     Dates: start: 20110224, end: 20110225
  8. ASPIRIN AND CAFFEINE AND PROPOXYPHENE HYDROCHLORIDE [Suspect]
     Route: 065
     Dates: end: 20110201
  9. DOCETAXEL [Concomitant]
     Indication: BREAST CANCER
     Route: 065
     Dates: start: 20110323, end: 20110323
  10. PREGABALIN [Suspect]
     Route: 065
     Dates: end: 20110201
  11. GRANISETRON HYDROCHLORIDE [Concomitant]
     Route: 065
  12. CYCLOPHOSPHAMIDE [Concomitant]
     Indication: BREAST CANCER
     Route: 065
     Dates: start: 20110223, end: 20110223
  13. EMEND [Suspect]
     Route: 048
     Dates: start: 20110106, end: 20110107
  14. PREDNISOLONE SODIUM METAZOATE [Concomitant]
     Route: 065
  15. FLUOROURACIL [Concomitant]
     Indication: BREAST CANCER
     Route: 065
     Dates: start: 20110105, end: 20110105
  16. EPIRUBICIN HYDROCHLORIDE [Concomitant]
     Indication: BREAST CANCER
     Route: 065
     Dates: start: 20110105, end: 20110105
  17. EPIRUBICIN HYDROCHLORIDE [Concomitant]
     Route: 065
     Dates: start: 20110126, end: 20110126
  18. EMEND [Suspect]
     Route: 048
     Dates: start: 20110126, end: 20110126
  19. ZOLMITRIPTAN [Suspect]
     Route: 065
     Dates: end: 20110201
  20. FLUOROURACIL [Concomitant]
     Route: 065
     Dates: start: 20110223, end: 20110223
  21. EMEND [Suspect]
     Indication: PROPHYLAXIS OF NAUSEA AND VOMITING
     Route: 048
     Dates: start: 20110105, end: 20110105
  22. DARBEPOETIN ALFA [Concomitant]
     Indication: ANAEMIA
     Route: 065
  23. FLUOROURACIL [Concomitant]
     Route: 065
     Dates: start: 20110126, end: 20110126

REACTIONS (1)
  - CYTOLYTIC HEPATITIS [None]
